FAERS Safety Report 13495586 (Version 1)
Quarter: 2017Q2

REPORT INFORMATION
  Report Type: Spontaneous
  Country: US (occurrence: US)
  Receive Date: 20170427
  Receipt Date: 20170427
  Transmission Date: 20170830
  Serious: No
  Sender: FDA-Public Use
  Company Number: None

PATIENT
  Age: 18 Year
  Sex: Male
  Weight: 82.17 kg

DRUGS (1)
  1. TRUMENBA [Suspect]
     Active Substance: NEISSERIA MENINGITIDIS SEROGROUP B RECOMBINANT LP2086 A05 PROTEIN VARIANT ANTIGEN\NEISSERIA MENINGITIDIS SEROGROUP B RECOMBINANT LP2086 B01 PROTEIN VARIANT ANTIGEN
     Indication: PROPHYLAXIS
     Route: 030
     Dates: start: 20150421

REACTIONS (2)
  - Hypoaesthesia [None]
  - Spinal pain [None]

NARRATIVE: CASE EVENT DATE: 20170425
